FAERS Safety Report 5103422-9 (Version None)
Quarter: 2006Q3

REPORT INFORMATION
  Report Type: 
  Country: None (occurrence: None)
  Receive Date: 20060913
  Receipt Date: 20060328
  Transmission Date: 20061208
  Serious: Yes (Death, Hospitalization)
  Sender: FDA-Public Use
  Company Number: JP-BRISTOL-MYERS SQUIBB COMPANY-13329669

PATIENT
  Age: 81 Year
  Sex: Female

DRUGS (11)
  1. PARAPLATIN [Suspect]
     Indication: LUNG NEOPLASM MALIGNANT
     Route: 042
     Dates: start: 20051031, end: 20051128
  2. LASTET [Suspect]
     Indication: LUNG NEOPLASM MALIGNANT
     Route: 042
     Dates: start: 20051031, end: 20060113
  3. CARBOMERCK [Suspect]
     Indication: LUNG NEOPLASM MALIGNANT
     Route: 042
  4. GASMOTIN [Concomitant]
     Route: 048
     Dates: start: 20051014, end: 20060217
  5. MUCOSTA [Concomitant]
     Route: 048
     Dates: start: 20051014, end: 20060228
  6. MAGNESIUM OXIDE [Concomitant]
     Route: 048
     Dates: start: 20051014, end: 20060228
  7. GASTER D [Concomitant]
     Route: 048
     Dates: start: 20051014, end: 20060228
  8. MIYA-BM [Concomitant]
     Route: 048
     Dates: start: 20051014, end: 20060228
  9. AMLODIN [Concomitant]
     Route: 048
     Dates: start: 20051014, end: 20060228
  10. MICARDIS [Concomitant]
     Route: 048
     Dates: start: 20051219, end: 20060228
  11. GASCON [Concomitant]
     Route: 048
     Dates: start: 20060218, end: 20060228

REACTIONS (3)
  - ARTERIAL OCCLUSIVE DISEASE [None]
  - RENAL DISORDER [None]
  - SPLENIC INFARCTION [None]
